FAERS Safety Report 6398174-9 (Version None)
Quarter: 2009Q4

REPORT INFORMATION
  Report Type: 
  Country: None (occurrence: None)
  Receive Date: 20091013
  Receipt Date: 20090915
  Transmission Date: 20100525
  Serious: No
  Sender: FDA-Public Use
  Company Number: US-BAYER-200933067NA

PATIENT
  Sex: Female

DRUGS (1)
  1. LEUKINE [Suspect]
     Indication: MALIGNANT MELANOMA
     Dates: start: 20090801

REACTIONS (1)
  - INJECTION SITE RASH [None]
